FAERS Safety Report 13887915 (Version 3)
Quarter: 2017Q4

REPORT INFORMATION
  Report Type: Report from Study
  Country: US (occurrence: US)
  Receive Date: 20170821
  Receipt Date: 20171101
  Transmission Date: 20180320
  Serious: Yes (Hospitalization)
  Sender: FDA-Public Use
  Company Number: US-MALLINCKRODT-T201703266

PATIENT
  Sex: Male

DRUGS (3)
  1. REPOSITORY CORTICOTROPIN INJECTION [Suspect]
     Active Substance: CORTICOTROPIN
     Dosage: 40 UNITS / .5 ML, 2 TIMES PER WEEK (MONDAY/FRIDAY)
     Route: 030
     Dates: start: 20170501, end: 20171016
  2. REPOSITORY CORTICOTROPIN INJECTION [Suspect]
     Active Substance: CORTICOTROPIN
     Indication: NEPHROTIC SYNDROME
     Dosage: 40 UNITS / .5 ML, 2 TIMES PER WEEK (MONDAY/FRIDAY)
     Route: 030
     Dates: start: 20170501
  3. REPOSITORY CORTICOTROPIN INJECTION [Suspect]
     Active Substance: CORTICOTROPIN
     Indication: PROTEINURIA
     Dosage: 40 UNITS / .5 ML, 2 TIMES PER WEEK (MONDAY/FRIDAY)
     Route: 058
     Dates: start: 20170501

REACTIONS (2)
  - Staphylococcal infection [Recovering/Resolving]
  - Blood glucose increased [Recovering/Resolving]
